FAERS Safety Report 11558299 (Version 1)
Quarter: 2015Q3

REPORT INFORMATION
  Report Type: Spontaneous
  Country: US (occurrence: None)
  Receive Date: 20150925
  Receipt Date: 20150925
  Transmission Date: 20151125
  Serious: Yes (Life-Threatening, Hospitalization, Disabling)
  Sender: FDA-Public Use
  Company Number: None

PATIENT
  Age: 35 Year
  Sex: Female
  Weight: 77.11 kg

DRUGS (1)
  1. MIRAPEX [Suspect]
     Active Substance: PRAMIPEXOLE DIHYDROCHLORIDE
     Indication: RESTLESS LEGS SYNDROME

REACTIONS (10)
  - Personality disorder [None]
  - Loss of employment [None]
  - Weight increased [None]
  - Compulsive shopping [None]
  - Economic problem [None]
  - Quality of life decreased [None]
  - Legal problem [None]
  - Alcoholic [None]
  - Major depression [None]
  - Alcohol withdrawal syndrome [None]
